FAERS Safety Report 4690992-8 (Version None)
Quarter: 2005Q2

REPORT INFORMATION
  Report Type: 
  Country: None (occurrence: None)
  Receive Date: 20050610
  Receipt Date: 20050523
  Transmission Date: 20051028
  Serious: Yes (Hospitalization, Other)
  Sender: FDA-Public Use
  Company Number: 2005084458

PATIENT
  Age: 29 Year
  Sex: Female

DRUGS (1)
  1. DEPO-PROVERA [Suspect]
     Indication: CONTRACEPTION
     Dosage: INTRAVENOUS
     Route: 042
     Dates: start: 20010615, end: 20010615

REACTIONS (5)
  - DEPRESSION [None]
  - FLATULENCE [None]
  - MENINGISM [None]
  - PHOTOPHOBIA [None]
  - VERTIGO [None]
